FAERS Safety Report 11257893 (Version 1)
Quarter: 2015Q3

REPORT INFORMATION
  Report Type: Other
  Country: GB (occurrence: GB)
  Receive Date: 20150710
  Receipt Date: 20150710
  Transmission Date: 20151125
  Serious: Yes (Death, Hospitalization, Other)
  Sender: FDA-Public Use
  Company Number: GB-SUN PHARMACEUTICAL INDUSTRIES LTD-2015SUN01551

PATIENT

DRUGS (25)
  1. ZOPICLONE [Suspect]
     Active Substance: ZOPICLONE
     Indication: INSOMNIA
     Route: 048
     Dates: start: 20130220
  2. VENLAFAXINE HYDROCHLORIDE 37.5MG TABLET [Suspect]
     Active Substance: VENLAFAXINE HYDROCHLORIDE
     Indication: DEPRESSION
     Route: 048
     Dates: start: 20140226
  3. IBUPROFEN. [Suspect]
     Active Substance: IBUPROFEN
     Indication: ANALGESIC THERAPY
     Route: 048
     Dates: start: 20140109
  4. LIORESAL [Suspect]
     Active Substance: BACLOFEN
     Indication: CEREBROVASCULAR ACCIDENT
     Dosage: 120.13 ?G, 1 DOSE
     Route: 037
     Dates: start: 20140120, end: 20140120
  5. LIORESAL [Suspect]
     Active Substance: BACLOFEN
     Dosage: 248.72 ?G, 1 DOSE
     Route: 037
     Dates: start: 20140128, end: 20140130
  6. LIORESAL [Suspect]
     Active Substance: BACLOFEN
     Dosage: 249.98 ?G, 1 DOSE
     Route: 037
     Dates: start: 20140226, end: 20140310
  7. SERTRALINE [Suspect]
     Active Substance: SERTRALINE HYDROCHLORIDE
     Indication: DEPRESSION
     Route: 048
     Dates: start: 20121210, end: 20140101
  8. BACLOFEN. [Suspect]
     Active Substance: BACLOFEN
     Indication: CEREBROVASCULAR ACCIDENT
     Dosage: UNK
     Route: 048
  9. CO-DYDRAMOL [Suspect]
     Active Substance: ACETAMINOPHEN\DIHYDROCODEINE
     Indication: ANALGESIC THERAPY
     Route: 048
     Dates: start: 20140109
  10. LIORESAL [Suspect]
     Active Substance: BACLOFEN
     Dosage: 207.44 ?G, 1 DOSE
     Route: 037
     Dates: start: 20140123, end: 20140127
  11. LIORESAL [Suspect]
     Active Substance: BACLOFEN
     Dosage: 248.72 ?G, 1 DOSE
     Route: 037
     Dates: start: 20140204, end: 20140206
  12. LIORESAL [Suspect]
     Active Substance: BACLOFEN
     Dosage: 274.29 ?G, 1 DOSE
     Route: 037
     Dates: start: 20140311
  13. AMLODIPINE [Suspect]
     Active Substance: AMLODIPINE BESYLATE
     Indication: HYPERTENSION
     Route: 048
     Dates: start: 20120705
  14. LIORESAL [Suspect]
     Active Substance: BACLOFEN
     Dosage: 227.52 ?G, 1 DOSE
     Route: 037
     Dates: start: 20140225, end: 20140225
  15. METOPROLOL [Suspect]
     Active Substance: METOPROLOL
     Indication: HYPERTENSION
     Route: 048
     Dates: start: 20120705
  16. PARACETAMOL [Suspect]
     Active Substance: ACETAMINOPHEN
     Indication: ANALGESIC THERAPY
     Dosage: 1000 MG, PRN
     Route: 048
     Dates: start: 20121112
  17. LIORESAL [Suspect]
     Active Substance: BACLOFEN
     Dosage: 172.03 ?G, 1 DOSE
     Route: 037
     Dates: start: 20140122, end: 20140122
  18. BACLOFEN. [Suspect]
     Active Substance: BACLOFEN
     Indication: MUSCLE SPASTICITY
     Dosage: 60 MG, UNK
     Route: 048
     Dates: start: 20120801, end: 20140120
  19. LIORESAL [Suspect]
     Active Substance: BACLOFEN
     Dosage: 143.94 ?G, 1 DOSE
     Route: 037
     Dates: start: 20140121, end: 20140121
  20. LIORESAL [Suspect]
     Active Substance: BACLOFEN
     Dosage: 207.44 ?G, 1 DOSE
     Route: 037
     Dates: start: 20140207, end: 20140224
  21. RAMIPRIL. [Suspect]
     Active Substance: RAMIPRIL
     Indication: HYPERTENSION
     Route: 048
     Dates: start: 20140113
  22. SILDENAFIL. [Suspect]
     Active Substance: SILDENAFIL
     Indication: ERECTILE DYSFUNCTION
     Dosage: 50 MG, PRN
     Route: 048
     Dates: start: 20130220
  23. LIORESAL [Suspect]
     Active Substance: BACLOFEN
     Indication: MUSCLE SPASTICITY
     Dosage: 100 ?G, QD
     Route: 037
     Dates: start: 20140117, end: 20140119
  24. LIORESAL [Suspect]
     Active Substance: BACLOFEN
     Dosage: 297.42 ?G, 1 DOSE
     Route: 037
     Dates: start: 20140121, end: 20140203
  25. MIRTAZAPINE. [Suspect]
     Active Substance: MIRTAZAPINE
     Indication: PRODUCT USED FOR UNKNOWN INDICATION
     Route: 065
     Dates: start: 20140522

REACTIONS (13)
  - Depression [Recovered/Resolved]
  - Vomiting [Unknown]
  - Alcohol poisoning [Fatal]
  - Injury [Unknown]
  - Fall [Unknown]
  - Self injurious behaviour [Unknown]
  - Erectile dysfunction [Unknown]
  - Insomnia [Unknown]
  - Malaise [Unknown]
  - Pain [Unknown]
  - Implant site infection [Recovered/Resolved]
  - Condition aggravated [Unknown]
  - Pain in extremity [Unknown]

NARRATIVE: CASE EVENT DATE: 20140401
